FAERS Safety Report 8612402-8 (Version None)
Quarter: 2012Q3

REPORT INFORMATION
  Report Type: 
  Country: None (occurrence: None)
  Receive Date: 20120813
  Receipt Date: 20120813
  Transmission Date: 20120928
  Serious: Yes (Other)
  Sender: FDA-Public Use
  Company Number: None

PATIENT
  Sex: Male

DRUGS (1)
  1. NORDITROPIN FLEXPRO [Suspect]
     Indication: ILL-DEFINED DISORDER
     Dosage: 0.3MG DAILY SQ
     Route: 058
     Dates: start: 20120209, end: 20120430

REACTIONS (1)
  - VISUAL IMPAIRMENT [None]
